FAERS Safety Report 8100271-4 (Version None)
Quarter: 2012Q1

REPORT INFORMATION
  Report Type: 
  Country: None (occurrence: None)
  Receive Date: 20120131
  Receipt Date: 20120116
  Transmission Date: 20120608
  Serious: Yes (Hospitalization)
  Sender: FDA-Public Use
  Company Number: SE-TEVA-318544ISR

PATIENT
  Age: 32 Year
  Sex: Male

DRUGS (6)
  1. NICOTINE [Concomitant]
  2. PROPAVAN [Concomitant]
     Dosage: 50 MILLIGRAM; AT NIGHT
  3. HALDOL [Concomitant]
     Dosage: 4 MILLIGRAM;
  4. INDERAL [Concomitant]
     Dosage: 120 MILLIGRAM;
  5. MODAFANIL [Suspect]
     Route: 048
     Dates: start: 20111201, end: 20111226
  6. MODAFANIL [Suspect]
     Dosage: INCREASING DOSAGES OVER 3 WEEKS, UP TO 300 MG
     Route: 048

REACTIONS (2)
  - KETOACIDOSIS [None]
  - DIABETES MELLITUS [None]
